FAERS Safety Report 17501109 (Version 1)
Quarter: 2020Q1

REPORT INFORMATION
  Report Type: Spontaneous
  Country: US (occurrence: US)
  Receive Date: 20200224
  Receipt Date: 20200224
  Transmission Date: 20200409
  Serious: Yes (Life-Threatening, Hospitalization, Congenital Anomaly)
  Sender: FDA-Public Use
  Company Number: None

PATIENT
  Sex: Male

DRUGS (5)
  1. MORPHINE INJECTION [Concomitant]
     Active Substance: MORPHINE
  2. HYDROCODONE-ACETAMINOPHEN (NORCO) [Concomitant]
  3. RISPERDONE [Suspect]
     Active Substance: RISPERIDONE
     Indication: MENTAL DISORDER
     Dosage: ?          QUANTITY:30 DF DOSAGE FORM;?
     Route: 048
     Dates: start: 20090220, end: 20190416
  4. ZOFRAN [Concomitant]
     Active Substance: ONDANSETRON HYDROCHLORIDE
  5. DIPHENHYDRAMINE (BENADRYL) [Concomitant]

REACTIONS (1)
  - Priapism [None]
